FAERS Safety Report 8167608-1 (Version None)
Quarter: 2012Q1

REPORT INFORMATION
  Report Type: 
  Country: None (occurrence: None)
  Receive Date: 20120227
  Receipt Date: 20120222
  Transmission Date: 20120608
  Serious: Yes (Other)
  Sender: FDA-Public Use
  Company Number: US-PFIZER INC-2012048455

PATIENT
  Sex: Female

DRUGS (6)
  1. LYRICA [Suspect]
     Dosage: 100 MG, 3X/DAY
  2. HYDROXYCHLOROQUINE [Concomitant]
     Dosage: UNK
  3. PROTONIX [Concomitant]
     Dosage: UNK
  4. CYMBALTA [Concomitant]
     Dosage: UNK
  5. PILOCARPINE [Concomitant]
     Dosage: UNK
  6. TIZANIDINE [Concomitant]
     Dosage: UNK

REACTIONS (2)
  - CONVULSION [None]
  - ACCIDENT [None]
